FAERS Safety Report 8171352-4 (Version None)
Quarter: 2012Q1

REPORT INFORMATION
  Report Type: 
  Country: None (occurrence: None)
  Receive Date: 20120104
  Receipt Date: 20110928
  Transmission Date: 20120608
  Serious: No
  Sender: FDA-Public Use
  Company Number: 2011HGS-002589

PATIENT
  Age: 48 Year
  Sex: Female
  Weight: 88.4514 kg

DRUGS (14)
  1. MIRENA [Concomitant]
  2. BENLYSTA [Suspect]
     Indication: SYSTEMIC LUPUS ERYTHEMATOSUS
     Dosage: 1 IN 2 WK, INTRAVENOUS DRIP
     Route: 041
     Dates: start: 20110906
  3. MAGNESIUM (MAGNESIUM) [Concomitant]
  4. FLUOXETINE [Concomitant]
  5. ADDERALL XR (OBETROL) (DEXAMFETAMINE SULFATE, AMFETAMINE SULFATE) [Concomitant]
  6. MYFORTIC (MUCOPHENOLATE SODIUM) [Concomitant]
  7. VIVELLE [Concomitant]
  8. TILEPTAL (OXCARBAZEPINE) [Concomitant]
  9. CALCIUM CARBONATE [Concomitant]
  10. XYREM [Concomitant]
  11. LEVOXYL [Concomitant]
  12. PLAQUENIL [Concomitant]
  13. PREDNISONE TAB [Concomitant]
  14. ABILIFY [Concomitant]

REACTIONS (4)
  - INJECTION SITE STREAKING [None]
  - INFUSION SITE PAIN [None]
  - NAUSEA [None]
  - RHINORRHOEA [None]
